FAERS Safety Report 9735458 (Version 1)
Quarter: 2013Q4

REPORT INFORMATION
  Report Type: Spontaneous
  Country: US (occurrence: US)
  Receive Date: 20131206
  Receipt Date: 20131206
  Transmission Date: 20140711
  Serious: No
  Sender: FDA-Public Use
  Company Number: US-GILEAD-2009-0022854

PATIENT
  Sex: Female
  Weight: 108.86 kg

DRUGS (16)
  1. LETAIRIS [Suspect]
     Indication: PULMONARY ARTERIAL HYPERTENSION
     Route: 048
     Dates: start: 20080528
  2. BYSTOLIC [Concomitant]
  3. REATIO [Concomitant]
  4. COZAAR [Concomitant]
  5. CARDIZEM [Concomitant]
  6. CARTI XT [Concomitant]
  7. ISOSORBIDE MONONITRATE [Concomitant]
  8. LASIX [Concomitant]
  9. METFORMIN [Concomitant]
  10. PLAQUENIL [Concomitant]
  11. NEXIUM [Concomitant]
  12. LEVOXYL [Concomitant]
  13. ABILIFY [Concomitant]
  14. ZOLOFT [Concomitant]
  15. ULTRAM [Concomitant]
  16. MUCINEX [Concomitant]

REACTIONS (1)
  - Rhinorrhoea [Unknown]
